FAERS Safety Report 4851584-0 (Version None)
Quarter: 2005Q4

REPORT INFORMATION
  Report Type: 
  Country: None (occurrence: None)
  Receive Date: 20051212
  Receipt Date: 20051130
  Transmission Date: 20060501
  Serious: Yes (Other)
  Sender: FDA-Public Use
  Company Number: US-ROCHE-426947

PATIENT
  Age: 51 Year
  Sex: Female

DRUGS (4)
  1. PEGASYS [Suspect]
     Route: 065
     Dates: start: 20050415
  2. COPEGUS [Suspect]
     Route: 048
     Dates: start: 20050415
  3. ZOLOFT [Concomitant]
     Indication: PROPHYLAXIS
     Route: 048
     Dates: start: 20050310
  4. PREVACID [Concomitant]
     Route: 048

REACTIONS (18)
  - ALOPECIA [None]
  - AMNESIA [None]
  - CAROTID PULSE [None]
  - COUGH [None]
  - DRY MOUTH [None]
  - DRY SKIN [None]
  - FATIGUE [None]
  - HEADACHE [None]
  - INFLUENZA LIKE ILLNESS [None]
  - INJECTION SITE REACTION [None]
  - INTERVERTEBRAL DISC PROTRUSION [None]
  - MYALGIA [None]
  - NAUSEA [None]
  - NECK PAIN [None]
  - SALIVARY DUCT OBSTRUCTION [None]
  - SKIN DISCOLOURATION [None]
  - TREMOR [None]
  - WEIGHT DECREASED [None]
